FAERS Safety Report 8622890-9 (Version None)
Quarter: 2012Q3

REPORT INFORMATION
  Report Type: 
  Country: None (occurrence: None)
  Receive Date: 20120827
  Receipt Date: 20120821
  Transmission Date: 20120928
  Serious: Yes (Other)
  Sender: FDA-Public Use
  Company Number: PHHY2012CA014273

PATIENT
  Sex: Female

DRUGS (1)
  1. SANDOSTATIN LAR [Suspect]
     Indication: INSULINOMA
     Dosage: 10 MG, ONCE A MONTH
     Route: 030
     Dates: start: 20111220

REACTIONS (8)
  - BLOOD PRESSURE INCREASED [None]
  - HEART RATE INCREASED [None]
  - DRUG INEFFECTIVE [None]
  - MALAISE [None]
  - FATIGUE [None]
  - HERPES ZOSTER [None]
  - DIZZINESS [None]
  - DECREASED APPETITE [None]
